FAERS Safety Report 26182472 (Version 1)
Quarter: 2025Q4

REPORT INFORMATION
  Report Type: Spontaneous
  Country: EU (occurrence: EU)
  Receive Date: 20251221
  Receipt Date: 20251221
  Transmission Date: 20260117
  Serious: Yes (Life-Threatening)
  Sender: MERCK SHARP & DOHME LLC
  Company Number: None

PATIENT
  Age: 57 Year
  Sex: Female

DRUGS (1)
  1. BEZLOTOXUMAB [Suspect]
     Active Substance: BEZLOTOXUMAB
     Indication: Clostridium difficile colitis
     Dosage: BEZLOTOXUMAB 10 MG /KG SINGLE DOSE
     Route: 042
     Dates: start: 20241228

REACTIONS (1)
  - Tongue oedema [Not Recovered/Not Resolved]

NARRATIVE: CASE EVENT DATE: 20241228
